FAERS Safety Report 6113097-8 (Version None)
Quarter: 2009Q1

REPORT INFORMATION
  Report Type: 
  Country: None (occurrence: None)
  Receive Date: 20090312
  Receipt Date: 20090302
  Transmission Date: 20090719
  Serious: Yes (Hospitalization)
  Sender: FDA-Public Use
  Company Number: JP-JNJFOC-20090101847

PATIENT
  Sex: Female

DRUGS (16)
  1. REMICADE [Suspect]
     Dosage: 15TH DOSE OF INFLIXIMAB
     Route: 042
  2. REMICADE [Suspect]
     Indication: RHEUMATOID ARTHRITIS
     Dosage: INFUSION 1-14 ON UNSPECIFIED DATES
     Route: 042
  3. RHEUMATREX [Suspect]
     Indication: RHEUMATOID ARTHRITIS
     Route: 048
  4. PREDONINE [Suspect]
     Indication: INTERSTITIAL LUNG DISEASE
     Route: 042
  5. SOLU-MEDROL [Suspect]
     Indication: INTERSTITIAL LUNG DISEASE
     Route: 042
  6. VENOGLOBULIN [Suspect]
     Indication: INTERSTITIAL LUNG DISEASE
     Route: 042
  7. GASTER-D [Suspect]
     Indication: INTERSTITIAL LUNG DISEASE
     Route: 048
  8. FOLIAMIN [Concomitant]
     Route: 048
  9. PREDNISOLONE [Concomitant]
     Route: 048
  10. BREDININ [Concomitant]
     Route: 048
  11. BONALON [Concomitant]
     Route: 048
  12. MARZULENE-S [Concomitant]
     Dosage: DOSE = ^3 PAC^
     Route: 048
  13. BIOFERMIN [Concomitant]
     Route: 048
  14. HYPEN [Concomitant]
     Route: 048
  15. DEPAS [Concomitant]
     Route: 048
  16. RHEUMATREX [Concomitant]
     Route: 048

REACTIONS (4)
  - BLOOD PRESSURE ABNORMAL [None]
  - DEPRESSED LEVEL OF CONSCIOUSNESS [None]
  - OXYGEN SATURATION DECREASED [None]
  - PNEUMOCYSTIS JIROVECI PNEUMONIA [None]
